FAERS Safety Report 10567797 (Version 1)
Quarter: 2014Q4

REPORT INFORMATION
  Report Type: Spontaneous
  Country: US (occurrence: None)
  Receive Date: 20141104
  Receipt Date: 20141104
  Transmission Date: 20150529
  Serious: Yes (Other)
  Sender: FDA-Public Use
  Company Number: 2014-US-014057

PATIENT
  Age: 71 Year
  Sex: Male

DRUGS (4)
  1. VALIUM [Concomitant]
     Active Substance: DIAZEPAM
  2. NEURONTIN [Concomitant]
     Active Substance: GABAPENTIN
  3. XYREM [Suspect]
     Active Substance: SODIUM OXYBATE
     Indication: NARCOLEPSY
     Route: 048
     Dates: start: 200211
  4. VICODIN [Suspect]
     Active Substance: ACETAMINOPHEN\HYDROCODONE BITARTRATE
     Indication: IRRITABLE BOWEL SYNDROME
     Dates: end: 20140628

REACTIONS (8)
  - Road traffic accident [None]
  - Drug abuse [None]
  - Nerve injury [None]
  - Headache [None]
  - Loss of consciousness [None]
  - Abnormal dreams [None]
  - Irritable bowel syndrome [None]
  - Nightmare [None]

NARRATIVE: CASE EVENT DATE: 201106
